FAERS Safety Report 16676106 (Version 1)
Quarter: 2019Q3

REPORT INFORMATION
  Report Type: Spontaneous
  Country: JP (occurrence: JP)
  Receive Date: 20190807
  Receipt Date: 20190807
  Transmission Date: 20191004
  Serious: Yes (Hospitalization)
  Sender: FDA-Public Use
  Company Number: JP-009507513-1906JPN001292J

PATIENT
  Age: 60 Year
  Sex: Female
  Weight: 40 kg

DRUGS (7)
  1. ABRAXANE [Suspect]
     Active Substance: PACLITAXEL
     Indication: NON-SMALL CELL LUNG CANCER
     Dosage: 144 UNK, QW
     Route: 041
     Dates: start: 20190416, end: 20190416
  2. ABRAXANE [Suspect]
     Active Substance: PACLITAXEL
     Dosage: 133 UNK
     Route: 041
     Dates: start: 20190514, end: 20190514
  3. CARBOPLATIN. [Suspect]
     Active Substance: CARBOPLATIN
     Indication: NON-SMALL CELL LUNG CANCER
     Dosage: 720 UNK, EVERY 4 WEEKS
     Route: 041
     Dates: start: 20190416, end: 20190416
  4. CARBOCISTEINE [Concomitant]
     Active Substance: CARBOCYSTEINE
     Indication: BRONCHITIS
     Dosage: 500 MILLIGRAM, TID
     Route: 048
     Dates: start: 20190424, end: 20190610
  5. CARBOPLATIN. [Suspect]
     Active Substance: CARBOPLATIN
     Dosage: 600 UNK, EVERY 4 WEEKS
     Route: 041
     Dates: start: 20190514, end: 20190514
  6. AMITIZA [Concomitant]
     Active Substance: LUBIPROSTONE
     Indication: CONSTIPATION
     Dosage: 24 MICROGRAM, BID
     Route: 048
     Dates: start: 20190424
  7. KEYTRUDA [Suspect]
     Active Substance: PEMBROLIZUMAB
     Indication: NON-SMALL CELL LUNG CANCER
     Dosage: 200 MILLIGRAM, EVERY 4 WEEKS
     Route: 041
     Dates: start: 20190416, end: 20190514

REACTIONS (2)
  - Drug eruption [Recovered/Resolved]
  - Off label use [Unknown]

NARRATIVE: CASE EVENT DATE: 20190502
